FAERS Safety Report 6761875-4 (Version None)
Quarter: 2010Q2

REPORT INFORMATION
  Report Type: 
  Country: None (occurrence: None)
  Receive Date: 20100609
  Receipt Date: 20100602
  Transmission Date: 20101027
  Serious: Yes (Other)
  Sender: FDA-Public Use
  Company Number: PH-JNJFOC-20100509827

PATIENT
  Age: 32 Year
  Sex: Male

DRUGS (9)
  1. RISPERDAL CONSTA [Suspect]
     Indication: MANIA
     Dosage: FOR 2 MONTHS
     Route: 030
  2. RISPERDAL CONSTA [Suspect]
     Dosage: FOR 2 MONTHS
     Route: 030
  3. RISPERDAL CONSTA [Suspect]
     Dosage: 2X/MONTH
     Route: 030
  4. RISPERDAL CONSTA [Suspect]
     Indication: SCHIZOPHRENIA
     Dosage: 2X/MONTH
     Route: 030
  5. RISPERDAL CONSTA [Suspect]
     Dosage: FOR 2 MONTHS
     Route: 030
  6. RISPERDAL CONSTA [Suspect]
     Dosage: FOR 2 MONTHS
     Route: 030
  7. INVEGA [Suspect]
     Indication: MANIA
     Route: 048
  8. INVEGA [Suspect]
     Indication: SCHIZOPHRENIA
     Route: 048
  9. LAMOTRIGINE [Suspect]
     Indication: DRUG USE FOR UNKNOWN INDICATION
     Route: 065

REACTIONS (4)
  - DEPRESSION [None]
  - HYPOMANIA [None]
  - MANIA [None]
  - TREATMENT NONCOMPLIANCE [None]
